FAERS Safety Report 8533378-8 (Version None)
Quarter: 2012Q3

REPORT INFORMATION
  Report Type: 
  Country: None (occurrence: None)
  Receive Date: 20120724
  Receipt Date: 20120717
  Transmission Date: 20120928
  Serious: Yes (Other)
  Sender: FDA-Public Use
  Company Number: PHHY2012FR062516

PATIENT
  Sex: Male
  Weight: 113 kg

DRUGS (9)
  1. LYRICA [Concomitant]
     Dosage: 100 MG, BID
     Route: 048
  2. RABEPRAZOLE SODIUM [Concomitant]
     Dosage: 20 MG, DAILY
  3. VOLTAREN [Concomitant]
     Indication: ANKYLOSING SPONDYLITIS
     Dosage: UNK
  4. TASIGNA [Suspect]
     Dosage: 400 MG, DAILY
     Route: 048
     Dates: start: 20070314
  5. INDAPAMIDE [Concomitant]
     Indication: HYPERTENSION
     Dosage: 5 MG, UNK
  6. HYPERIUM [Concomitant]
     Indication: HYPERTENSION
     Dosage: 1 MG, DAILYU
     Route: 048
  7. JANUMET [Concomitant]
     Dosage: 50 MG,
     Route: 048
  8. TASIGNA [Suspect]
     Indication: CHRONIC MYELOID LEUKAEMIA
     Dosage: UNK
     Route: 048
     Dates: start: 20061219
  9. CRESTOR [Concomitant]
     Dosage: 10 MG, DAILY
     Route: 048

REACTIONS (4)
  - CAROTID ARTERIOSCLEROSIS [None]
  - HYPERGLYCAEMIA [None]
  - ARTERIOSCLEROSIS [None]
  - AORTIC BRUIT [None]
